FAERS Safety Report 23191383 (Version 2)
Quarter: 2023Q4

REPORT INFORMATION
  Report Type: Spontaneous
  Country: BE (occurrence: BE)
  Receive Date: 20231116
  Receipt Date: 20231130
  Transmission Date: 20240110
  Serious: Yes (Other)
  Sender: FDA-Public Use
  Company Number: BE-MYLANLABS-2023M1121759

PATIENT
  Age: 43 Year
  Sex: Male
  Weight: 70 kg

DRUGS (11)
  1. POSACONAZOLE [Suspect]
     Active Substance: POSACONAZOLE
     Indication: Aspergillus infection
     Dosage: 300 MILLIGRAM, QD
     Route: 048
     Dates: start: 20221007, end: 20221205
  2. POSACONAZOLE [Suspect]
     Active Substance: POSACONAZOLE
     Indication: Fungal infection
  3. COTRIMOXAZOLE [Suspect]
     Active Substance: SULFAMETHOXAZOLE\TRIMETHOPRIM
     Indication: Nocardiosis
     Dosage: 960 MILLIGRAM, BID
     Route: 048
     Dates: start: 20220926, end: 20221115
  4. AMPHOTERICIN B [Suspect]
     Active Substance: AMPHOTERICIN B
     Indication: Aspergillus infection
     Dosage: UNK, QD (3 MILLIGRAM PER KILOGRAM PER DAY)
     Route: 042
     Dates: start: 20221007, end: 20221110
  5. MEROPENEM [Concomitant]
     Active Substance: MEROPENEM
     Indication: Central nervous system infection
     Dosage: 1 GRAM, TID
     Route: 042
     Dates: start: 20220926, end: 20231110
  6. CASPOFUNGIN [Concomitant]
     Active Substance: CASPOFUNGIN
     Indication: Aspergillus infection
     Dosage: 50 MILLIGRAM, QD
     Route: 042
     Dates: start: 20220914, end: 20220926
  7. CASPOFUNGIN [Concomitant]
     Active Substance: CASPOFUNGIN
     Dosage: 50 MILLIGRAM, QD
     Route: 042
     Dates: start: 20221205, end: 20230331
  8. VORICONAZOLE [Concomitant]
     Active Substance: VORICONAZOLE
     Indication: Aspergillus infection
     Dosage: 300 MILLIGRAM, BID ((CHANGE D BASED  UPON  TDM)
     Route: 065
     Dates: start: 20220902, end: 20231007
  9. CEFTRIAXONE [Concomitant]
     Active Substance: CEFTRIAXONE\CEFTRIAXONE SODIUM
     Indication: Nocardiosis
     Dosage: 2 GRAM, QD
     Route: 042
     Dates: start: 20221115, end: 20230209
  10. TACROLIMUS [Concomitant]
     Active Substance: TACROLIMUS
     Indication: Prophylaxis against transplant rejection
     Dosage: 2 MILLIGRAM, BID (BASED UPON TDM)
     Route: 048
     Dates: start: 202202, end: 20221125
  11. MYCOPHENOLIC ACID [Concomitant]
     Active Substance: MYCOPHENOLIC ACID
     Indication: Prophylaxis against transplant rejection
     Dosage: 1 GRAM, BID
     Route: 048
     Dates: start: 20220213

REACTIONS (7)
  - Respiratory distress [Unknown]
  - Condition aggravated [Unknown]
  - Acute kidney injury [Recovered/Resolved]
  - Pancytopenia [Recovered/Resolved]
  - Microangiopathic haemolytic anaemia [Recovered/Resolved]
  - General physical health deterioration [Unknown]
  - Pyrexia [Unknown]

NARRATIVE: CASE EVENT DATE: 20221109
